FAERS Safety Report 15525030 (Version 2)
Quarter: 2019Q3

REPORT INFORMATION
  Report Type: Report from Study
  Country: US (occurrence: US)
  Receive Date: 20181018
  Receipt Date: 20190813
  Transmission Date: 20191004
  Serious: Yes (Other)
  Sender: FDA-Public Use
  Company Number: US-BAXTER-2018BAX025577

PATIENT
  Age: 13 Year
  Sex: Male
  Weight: 48.7 kg

DRUGS (21)
  1. IFOSFAMIDE FOR INJECTION [Suspect]
     Active Substance: IFOSFAMIDE
     Dosage: COURSE A: CYCLE 5 (CYCLE= 21 DAYS), OVER 60 MIN ON DAYS 1-5
     Route: 042
     Dates: start: 20180821
  2. CYCLOPHOSPHAMIDE FOR INJECTION, USP [Suspect]
     Active Substance: CYCLOPHOSPHAMIDE
     Indication: ANAPLASTIC LARGE CELL LYMPHOMA T- AND NULL-CELL TYPES
     Dosage: PROPHASE (CYCLE = 5 DAYS), OVER 15-30 MINUTES ON DAYS 1 AND 2
     Route: 042
  3. CYCLOPHOSPHAMIDE FOR INJECTION, USP [Suspect]
     Active Substance: CYCLOPHOSPHAMIDE
     Dosage: COURSE B: CYCLES 2 AND 4 (CYCLE= 21 DAYS), OVER 15-30 MINUTES ON DAYS 1-5
     Route: 042
  4. METHOTREXATE SODIUM. [Suspect]
     Active Substance: METHOTREXATE SODIUM
     Dosage: COURSE A: CYCLE 5 (CYCLE= 21 DAYS), OVER 3 HOURS ON DAY 1
     Route: 042
     Dates: start: 20180821
  5. DOXORUBICIN HYDROCHLORIDE. [Suspect]
     Active Substance: DOXORUBICIN HYDROCHLORIDE
     Indication: ANAPLASTIC LARGE CELL LYMPHOMA T- AND NULL-CELL TYPES
     Dosage: COURSE B: CYCLES 2 AND 4 (CYCLE= 21 DAYS), OVER 1-15 MIN ON DAYS 4 AND 5
     Route: 042
  6. METHOTREXATE SODIUM. [Suspect]
     Active Substance: METHOTREXATE SODIUM
     Dosage: COURSE A (CYCLE 1 AND 3) AND COURSE B: CYCLE 2 AND 4 (CYCLE= 21 DAYS), OVER 3 HOURS ON DAY 1
     Route: 042
     Dates: start: 20180522
  7. DEXAMETHASONE. [Suspect]
     Active Substance: DEXAMETHASONE
     Dosage: COURSE A (CYCLE 1 AND 3) AND COURSE B: CYCLE 2 AND 4 (CYCLE= 21 DAYS), TWICE DAILY, ON DAYS 1-5
     Route: 048
     Dates: start: 20180522
  8. VP-16 [Suspect]
     Active Substance: ETOPOSIDE
     Indication: ANAPLASTIC LARGE CELL LYMPHOMA T- AND NULL-CELL TYPES
     Dosage: COURSE A: CYCLES 1 AND 3 (CYCLE= 21 DAYS), OVER 2 HOURS ON DAYS 4 AND 5
     Route: 042
     Dates: start: 20180522
  9. CRIZOTINIB [Suspect]
     Active Substance: CRIZOTINIB
     Dosage: COURSE A: CYCLE 5 (CYCLE= 21 DAYS), TWICE DAILY ON DAYS 1-21
     Route: 048
     Dates: start: 20180821
  10. HYDROCORTISONE SODIUM SUCCINATE [Suspect]
     Active Substance: HYDROCORTISONE SODIUM SUCCINATE
     Indication: ANAPLASTIC LARGE CELL LYMPHOMA T- AND NULL-CELL TYPES
     Dosage: PROPHASE (CYCLE = 5 DAYS), 7.5-12 MG, ON DAY 1 (AGE BASED DOSING)
     Route: 037
  11. METHOTREXATE SODIUM. [Suspect]
     Active Substance: METHOTREXATE SODIUM
     Indication: ANAPLASTIC LARGE CELL LYMPHOMA T- AND NULL-CELL TYPES
     Dosage: PROPHASE (CYCLE = 5 DAYS), 7.5-12 MG, ON DAY 1 (AGE BASED DOSING)
     Route: 037
  12. VP-16 [Suspect]
     Active Substance: ETOPOSIDE
     Dosage: COURSE A: CYCLE 5 (CYCLE= 21 DAYS), OVER 2 HOURS ON DAYS 4 AND 5
     Route: 042
     Dates: start: 20180821
  13. CRIZOTINIB [Suspect]
     Active Substance: CRIZOTINIB
     Indication: ANAPLASTIC LARGE CELL LYMPHOMA T- AND NULL-CELL TYPES
     Dosage: COURSE A (CYCLE 1 AND 3) AND COURSE B: CYCLE 2 AND 4 (CYCLE= 21 DAYS), TWICE DAILY ON DAYS 1-21
     Route: 048
     Dates: start: 20180522
  14. CYTARABINE. [Suspect]
     Active Substance: CYTARABINE
     Indication: ANAPLASTIC LARGE CELL LYMPHOMA T- AND NULL-CELL TYPES
     Dosage: PROPHASE (CYCLE = 5 DAYS), 15-24 MG, ON DAY 1 (AGE BASED DOSING)
     Route: 037
  15. DEXAMETHASONE. [Suspect]
     Active Substance: DEXAMETHASONE
     Indication: ANAPLASTIC LARGE CELL LYMPHOMA T- AND NULL-CELL TYPES
     Dosage: PROPHASE (CYCLE = 5 DAYS), ONCE DAILY ON DAYS 1-2
     Route: 048
  16. DEXAMETHASONE. [Suspect]
     Active Substance: DEXAMETHASONE
     Dosage: PROPHASE (CYCLE = 5 DAYS), TWICE DAILY, ON DAYS 3-5
     Route: 048
  17. CRIZOTINIB [Suspect]
     Active Substance: CRIZOTINIB
     Dosage: LAST DOSE ADMINISTERED
     Route: 048
     Dates: start: 20180824, end: 20180824
  18. CYTARABINE. [Suspect]
     Active Substance: CYTARABINE
     Dosage: COURSE A: CYCLE 5 (CYCLE= 21 DAYS), OVER 1-30 MINUTES, Q12 HOURS ON DAYS 4 AND 5 (TOTAL 4 DOSES)
     Route: 042
     Dates: start: 20180821
  19. IFOSFAMIDE FOR INJECTION [Suspect]
     Active Substance: IFOSFAMIDE
     Indication: ANAPLASTIC LARGE CELL LYMPHOMA T- AND NULL-CELL TYPES
     Dosage: COURSE A: CYCLES 1 AND 3 (CYCLE= 21 DAYS), OVER 60 MIN ON DAYS 1-5
     Route: 042
     Dates: start: 20180522
  20. CYTARABINE. [Suspect]
     Active Substance: CYTARABINE
     Dosage: COURSE A: CYCLES 1 AND 3 (CYCLE= 21 DAYS), OVER 1-30 MINUTES, Q12 HOURS ON DAYS 4 AND 5 (TOTAL 4 DOS
     Route: 042
     Dates: start: 20180522
  21. DEXAMETHASONE. [Suspect]
     Active Substance: DEXAMETHASONE
     Dosage: COURSE A: CYCLE 5 (CYCLE= 21 DAYS), TWICE DAILY, ON DAYS 1-5
     Route: 048
     Dates: start: 20180821

REACTIONS (1)
  - Hypokalaemia [Recovered/Resolved]

NARRATIVE: CASE EVENT DATE: 20180825
